FAERS Safety Report 4614036-9 (Version None)
Quarter: 2005Q1

REPORT INFORMATION
  Report Type: 
  Country: None (occurrence: None)
  Receive Date: 20050316
  Receipt Date: 20050225
  Transmission Date: 20050727
  Serious: No
  Sender: FDA-Public Use
  Company Number: AU_050308405

PATIENT
  Age: 33 Year
  Sex: Female

DRUGS (4)
  1. OLANZAPINE [Suspect]
     Indication: DEPRESSION
     Dosage: 5 MG/ONCE DAY
  2. PROPYLTHIORACIL [Concomitant]
  3. PAROXETINE HCL [Concomitant]
  4. ZOPICLONE (ZOPICLONE) [Concomitant]

REACTIONS (5)
  - ARTHRALGIA [None]
  - JOINT SWELLING [None]
  - OVERDOSE [None]
  - PURPURA [None]
  - VASCULITIS [None]
